FAERS Safety Report 9361972 (Version 1)
Quarter: 2013Q2

REPORT INFORMATION
  Report Type: Spontaneous
  Country: FR (occurrence: FR)
  Receive Date: 20130621
  Receipt Date: 20130621
  Transmission Date: 20140414
  Serious: Yes (Other)
  Sender: FDA-Public Use
  Company Number: FR-009507513-1306FRA007191

PATIENT
  Age: 32 Year
  Sex: Female

DRUGS (2)
  1. IMPLANON [Suspect]
     Route: 059
  2. EFAVIRENZ [Interacting]

REACTIONS (3)
  - Abortion induced [Unknown]
  - Drug interaction [Unknown]
  - Unintended pregnancy [Recovered/Resolved]
